FAERS Safety Report 6812870-8 (Version None)
Quarter: 2010Q3

REPORT INFORMATION
  Report Type: 
  Country: None (occurrence: None)
  Receive Date: 20100701
  Receipt Date: 20100623
  Transmission Date: 20110219
  Serious: Yes (Hospitalization)
  Sender: FDA-Public Use
  Company Number: GXKR2010GB07043

PATIENT
  Age: 39 Year
  Sex: Male

DRUGS (8)
  1. MYCOPHENOLATE MOFETIL [Suspect]
     Indication: RENAL TRANSPLANT
     Dosage: 1000 UG, BID
     Route: 048
     Dates: start: 20081212
  2. MYCOPHENOLATE MOFETIL [Suspect]
     Indication: POSTOPERATIVE CARE
  3. TACROLIMUS (NGX) [Suspect]
     Indication: POSTOPERATIVE CARE
     Dosage: 4 MG, BID
     Route: 048
     Dates: start: 20081212
  4. TACROLIMUS (NGX) [Suspect]
     Indication: RENAL TRANSPLANT
  5. BISOPROLOL FUMARATE [Concomitant]
     Dosage: 2.5 MG, QD
     Route: 048
  6. MYCOPHENOLIC ACID [Concomitant]
     Dosage: 1 G, BID
     Route: 048
     Dates: start: 20081212
  7. PREDNISOLONE [Concomitant]
     Dosage: 10 MG, Q48H
     Route: 048
     Dates: start: 20100212
  8. VALPROATE SODIUM [Concomitant]
     Dosage: 500 MG, TID
     Route: 048

REACTIONS (5)
  - BLOOD GLUCOSE INCREASED [None]
  - DIABETES MELLITUS [None]
  - THIRST [None]
  - URINE OUTPUT INCREASED [None]
  - VISION BLURRED [None]
